FAERS Safety Report 8231285-1 (Version None)
Quarter: 2012Q1

REPORT INFORMATION
  Report Type: 
  Country: None (occurrence: None)
  Receive Date: 20120321
  Receipt Date: 20120311
  Transmission Date: 20120608
  Serious: Yes (Hospitalization)
  Sender: FDA-Public Use
  Company Number: AUR-APL-2012-01388

PATIENT
  Age: 91 Year
  Sex: Female
  Weight: 61.22 kg

DRUGS (4)
  1. LIPITOR [Suspect]
     Indication: ISCHAEMIC HEART DISEASE PROPHYLAXIS
     Dosage: (20 MG, 1 D)
     Dates: start: 20120219
  2. LIPITOR [Suspect]
     Indication: CEREBROVASCULAR ACCIDENT PROPHYLAXIS
     Dosage: (20 MG, 1 D)
     Dates: start: 20120219
  3. LOSARTAN POTASSIUM [Suspect]
     Indication: HYPERTENSION
     Dosage: (100 MG, 1 D), (50 MG, 1 D)
  4. METOPROLOL TARTRATE [Suspect]
     Indication: HYPERTENSION
     Dosage: (25 MG, 1 D), ORAL
     Route: 048
     Dates: end: 20120101

REACTIONS (5)
  - COUGH [None]
  - RHINORRHOEA [None]
  - DECREASED APPETITE [None]
  - FATIGUE [None]
  - NAUSEA [None]
